FAERS Safety Report 24997375 (Version 2)
Quarter: 2025Q1

REPORT INFORMATION
  Report Type: Report from Study
  Country: FR (occurrence: FR)
  Receive Date: 20250222
  Receipt Date: 20250227
  Transmission Date: 20250408
  Serious: No
  Sender: ABBVIE
  Company Number: FR-ABBVIE-6140461

PATIENT
  Age: 55 Year
  Sex: Male

DRUGS (1)
  1. FOSCARBIDOPA\FOSLEVODOPA [Suspect]
     Active Substance: FOSCARBIDOPA\FOSLEVODOPA
     Indication: Product used for unknown indication
     Route: 058
     Dates: start: 20250123

REACTIONS (4)
  - Thinking abnormal [Not Recovered/Not Resolved]
  - Akinesia [Not Recovered/Not Resolved]
  - Bradykinesia [Not Recovered/Not Resolved]
  - Device occlusion [Not Recovered/Not Resolved]

NARRATIVE: CASE EVENT DATE: 20250213
